FAERS Safety Report 8815689 (Version 2)
Quarter: 2013Q1

REPORT INFORMATION
  Report Type: Spontaneous
  Country: IT (occurrence: IT)
  Receive Date: 20120928
  Receipt Date: 20130321
  Transmission Date: 20140127
  Serious: Yes (Other)
  Sender: FDA-Public Use
  Company Number: IT-PFIZER INC-2012237424

PATIENT
  Age: 70 Year
  Sex: Female

DRUGS (7)
  1. HALCION [Suspect]
     Dosage: UNK
     Route: 048
     Dates: start: 20120101, end: 20120910
  2. LOSARTAN [Suspect]
     Dosage: UNK
     Route: 048
     Dates: start: 20120101, end: 20120910
  3. ATENOLOL [Suspect]
     Dosage: UNK
     Route: 048
     Dates: start: 20120101, end: 20120910
  4. ZANEDIP [Suspect]
     Dosage: UNK
     Route: 048
     Dates: start: 20120101, end: 20120910
  5. CARDIOASPIRIN [Concomitant]
     Dosage: UNK
  6. TORVAST [Concomitant]
     Dosage: UNK
  7. OMEPRAZEN [Concomitant]
     Dosage: UNK

REACTIONS (10)
  - Syncope [Recovered/Resolved]
  - Blood pressure increased [Unknown]
  - Hyperhidrosis [Recovered/Resolved]
  - Hot flush [Recovered/Resolved]
  - Presyncope [Recovered/Resolved]
  - Lymphocyte count increased [Unknown]
  - Neutrophil count increased [Unknown]
  - C-reactive protein increased [Unknown]
  - White blood cell count increased [Unknown]
  - Blood glucose increased [None]
